FAERS Safety Report 19673197 (Version 1)
Quarter: 2021Q3

REPORT INFORMATION
  Report Type: Spontaneous
  Country: US (occurrence: US)
  Receive Date: 20210809
  Receipt Date: 20210809
  Transmission Date: 20211014
  Serious: Yes (Other)
  Sender: FDA-Public Use
  Company Number: US-ACCORD-159669

PATIENT
  Age: 40 Year
  Sex: Female
  Weight: 85.28 kg

DRUGS (6)
  1. DOCETAXEL ACCORD [Suspect]
     Active Substance: DOCETAXEL
     Indication: BREAST CANCER
     Dosage: NUMBER OF CYCLES: 04, EVERY THREE WEEKS
     Dates: start: 20140328, end: 20140710
  2. PARAPLATIN [Suspect]
     Active Substance: CARBOPLATIN
     Indication: BREAST CANCER
     Dosage: NUMBER OF CYCLES: 04, EVERY THREE WEEKS
     Dates: start: 20140328, end: 20140710
  3. PERTUZUMAB. [Suspect]
     Active Substance: PERTUZUMAB
     Indication: BREAST CANCER
     Dosage: NUMBER OF CYCLES: 04, EVERY THREE WEEKS
     Dates: start: 20140328, end: 20140710
  4. ARIMIDEX [Concomitant]
     Active Substance: ANASTROZOLE
  5. ZOLADEX [Concomitant]
     Active Substance: GOSERELIN ACETATE
  6. HERCEPTIN [Suspect]
     Active Substance: TRASTUZUMAB
     Indication: BREAST CANCER
     Dosage: NUMBER OF CYCLES: 04, EVERY THREE WEEKS
     Dates: start: 20140328, end: 20140710

REACTIONS (1)
  - Alopecia [Not Recovered/Not Resolved]

NARRATIVE: CASE EVENT DATE: 20140821
